FAERS Safety Report 13394981 (Version 1)
Quarter: 2017Q2

REPORT INFORMATION
  Report Type: Report from Study
  Country: KR (occurrence: KR)
  Receive Date: 20170403
  Receipt Date: 20170403
  Transmission Date: 20170830
  Serious: Yes (Hospitalization)
  Sender: FDA-Public Use
  Company Number: KR-ROCHE-1914590

PATIENT
  Age: 59 Year
  Sex: Female
  Weight: 84 kg

DRUGS (11)
  1. TOCILIZUMAB [Suspect]
     Active Substance: TOCILIZUMAB
     Indication: RHEUMATOID ARTHRITIS
     Dosage: DATE OF MOST RECENT DOSE:03/AUG/2016
     Route: 042
     Dates: start: 20160706
  2. URSA [Concomitant]
     Route: 065
     Dates: start: 20141215
  3. MOTILITONE [Concomitant]
     Active Substance: HERBALS
     Route: 065
     Dates: start: 20160203
  4. METHOTREXATE. [Concomitant]
     Active Substance: METHOTREXATE
     Indication: RHEUMATOID ARTHRITIS
     Route: 065
     Dates: start: 20150701
  5. PARIET [Concomitant]
     Active Substance: RABEPRAZOLE SODIUM
     Route: 065
     Dates: start: 20151002
  6. PROMAC (JAPAN) [Concomitant]
     Route: 065
     Dates: start: 20151002
  7. OLMETEC [Concomitant]
     Active Substance: OLMESARTAN MEDOXOMIL
     Indication: HYPERTENSION
     Route: 065
     Dates: start: 20150601
  8. BEECOM [Concomitant]
     Dosage: 1TAB
     Route: 065
     Dates: start: 20150528
  9. GLIATAMIN [Concomitant]
     Route: 065
     Dates: start: 20160106
  10. FOLIC ACID. [Concomitant]
     Active Substance: FOLIC ACID
     Route: 065
     Dates: start: 20130509
  11. ULTRACET SEMI [Concomitant]
     Indication: RHEUMATOID ARTHRITIS
     Dosage: 1TAB
     Route: 065
     Dates: start: 20140217

REACTIONS (1)
  - Arthralgia [Recovered/Resolved]

NARRATIVE: CASE EVENT DATE: 20160905
